FAERS Safety Report 25824139 (Version 1)
Quarter: 2025Q3

REPORT INFORMATION
  Report Type: Spontaneous
  Country: CN (occurrence: CN)
  Receive Date: 20250919
  Receipt Date: 20250919
  Transmission Date: 20251020
  Serious: Yes (Hospitalization)
  Sender: FRESENIUS KABI
  Company Number: CN-FreseniusKabi-FK202512580

PATIENT
  Age: 91 Year
  Sex: Female
  Weight: 35 kg

DRUGS (1)
  1. KABIVEN [Suspect]
     Active Substance: ALANINE\ARGININE\ASPARTIC ACID\CALCIUM CHLORIDE\DEXTROSE MONOHYDRATE\GLUTAMIC ACID\GLYCINE\HISTIDINE
     Indication: Nutritional supplementation
     Dosage: FOA: INJECTION
     Route: 041
     Dates: start: 20250911, end: 20250911

REACTIONS (2)
  - Diarrhoea [Not Recovered/Not Resolved]
  - Gastrointestinal haemorrhage [Not Recovered/Not Resolved]

NARRATIVE: CASE EVENT DATE: 20250912
